FAERS Safety Report 21148811 (Version 1)
Quarter: 2022Q3

REPORT INFORMATION
  Report Type: Spontaneous
  Country: US (occurrence: None)
  Receive Date: 20220729
  Receipt Date: 20220729
  Transmission Date: 20221027
  Serious: No
  Sender: FDA-Public Use
  Company Number: None

PATIENT
  Age: 50 Year
  Sex: Female
  Weight: 79.2 kg

DRUGS (19)
  1. IBRANCE [Suspect]
     Active Substance: PALBOCICLIB
     Dosage: OTHER FREQUENCY : 3W,1WOFF;?
     Route: 048
     Dates: start: 202108
  2. ATORVASTATIN CALCIUM [Concomitant]
  3. BUSPIRONE HCI [Concomitant]
  4. CYCLOBENZAPRINE HCI [Concomitant]
  5. DULOXETINE HCI [Concomitant]
  6. FASLODEX [Concomitant]
  7. FUROSEMIDE [Concomitant]
  8. HYDROCODONE-ACETAMINOPHEN [Concomitant]
  9. HYDROXYZINE HCI [Concomitant]
  10. LORATADINE [Concomitant]
  11. MULTI FOR HER [Concomitant]
  12. NAPROXEN [Concomitant]
  13. OMEPRAZOLE [Concomitant]
  14. POTASSIUM CHLORIDE ER [Concomitant]
  15. PROCHLORPERAZINE MALEATE [Concomitant]
  16. PROPRANOLOL HCI [Concomitant]
  17. QUFETIAPINE FUMARATE ER [Concomitant]
  18. SINGULAIR [Concomitant]
  19. TRAZODONE HCI [Concomitant]

REACTIONS (1)
  - Malignant neoplasm progression [None]
